FAERS Safety Report 11036566 (Version 1)
Quarter: 2015Q2

REPORT INFORMATION
  Report Type: Other
  Country: IR (occurrence: IR)
  Receive Date: 20150416
  Receipt Date: 20150416
  Transmission Date: 20150821
  Serious: No
  Sender: FDA-Public Use
  Company Number: IR-LUPIN PHARMACEUTICALS INC.-2015-00017

PATIENT
  Sex: Female

DRUGS (1)
  1. QUETIAPINE [Suspect]
     Active Substance: QUETIAPINE
     Indication: MANIA
     Dosage: 25 MG
     Route: 065

REACTIONS (2)
  - Dyskinesia [Recovered/Resolved]
  - Dystonia [Recovered/Resolved]
